FAERS Safety Report 6077091-8 (Version None)
Quarter: 2009Q1

REPORT INFORMATION
  Report Type: 
  Country: None (occurrence: None)
  Receive Date: 20090213
  Receipt Date: 20090203
  Transmission Date: 20090719
  Serious: Yes (Other)
  Sender: FDA-Public Use
  Company Number: PHHY2009JP04550

PATIENT
  Age: 68 Year
  Sex: Male

DRUGS (1)
  1. VOLTAREN [Suspect]
     Indication: INTERCOSTAL NEURALGIA
     Dosage: 50 MG, UNK
     Route: 054

REACTIONS (3)
  - DRUG ERUPTION [None]
  - GASTRIC CANCER [None]
  - NEUTROPHIL COUNT INCREASED [None]
